FAERS Safety Report 23321478 (Version 1)
Quarter: 2023Q4

REPORT INFORMATION
  Report Type: Report from Study
  Country: US (occurrence: None)
  Receive Date: 20231220
  Receipt Date: 20231220
  Transmission Date: 20240109
  Serious: Yes (Life-Threatening)
  Sender: FDA-Public Use
  Company Number: 2023A288904

PATIENT

DRUGS (1)
  1. BREZTRI [Suspect]
     Active Substance: BUDESONIDE\FORMOTEROL\GLYCOPYRROLATE
     Dosage: UNKNOWN UNKNOWN
     Route: 055

REACTIONS (5)
  - Sarcoidosis [Unknown]
  - Asthma [Unknown]
  - Immunodeficiency [Unknown]
  - Inability to afford medication [Unknown]
  - Lung disorder [Unknown]
